FAERS Safety Report 4610531-7 (Version None)
Quarter: 2005Q1

REPORT INFORMATION
  Report Type: 
  Country: None (occurrence: None)
  Receive Date: 20050316
  Receipt Date: 20050221
  Transmission Date: 20050727
  Serious: Yes (Disabling)
  Sender: FDA-Public Use
  Company Number: US-MERCK-0502USA02602

PATIENT
  Age: 54 Year
  Sex: Female

DRUGS (4)
  1. VIOXX [Suspect]
     Indication: BACK PAIN
     Route: 048
     Dates: start: 20020201
  2. VIOXX [Suspect]
     Route: 048
     Dates: end: 20030501
  3. [THERAPY UNSPECIFIED] [Concomitant]
     Route: 065
  4. OXYCONTIN [Concomitant]
     Route: 065

REACTIONS (4)
  - CEREBROVASCULAR ACCIDENT [None]
  - DYSARTHRIA [None]
  - MULTIPLE SCLEROSIS [None]
  - MUSCLE SPASTICITY [None]
